FAERS Safety Report 24409845 (Version 5)
Quarter: 2025Q1

REPORT INFORMATION
  Report Type: Spontaneous
  Country: US (occurrence: US)
  Receive Date: 20241008
  Receipt Date: 20250222
  Transmission Date: 20250408
  Serious: Yes (Death, Other)
  Sender: SANOFI AVENTIS
  Company Number: US-SA-2024SA276444

PATIENT
  Age: 66 Year
  Sex: Female
  Weight: 116.82 kg

DRUGS (21)
  1. KEVZARA [Suspect]
     Active Substance: SARILUMAB
     Indication: Rheumatoid arthritis
     Dosage: 200 MG, QOW
     Route: 058
     Dates: start: 20240709
  2. BUPROPION [Concomitant]
     Active Substance: BUPROPION
  3. CALCIUM [Concomitant]
     Active Substance: CALCIUM
  4. DULOXETINE [Concomitant]
     Active Substance: DULOXETINE
  5. ESTRADIOL [Concomitant]
     Active Substance: ESTRADIOL
  6. FOSAMAX [Concomitant]
     Active Substance: ALENDRONATE SODIUM
  7. GABAPENTIN [Concomitant]
     Active Substance: GABAPENTIN
  8. HIZENTRA [Concomitant]
     Active Substance: HUMAN IMMUNOGLOBULIN G
  9. LISINOPRIL [Concomitant]
     Active Substance: LISINOPRIL
  10. LYRICA [Concomitant]
     Active Substance: PREGABALIN
  11. MAGNESIUM [Concomitant]
     Active Substance: MAGNESIUM
  12. PANTOPRAZOLE [Concomitant]
     Active Substance: PANTOPRAZOLE
  13. PILOCARPINE [Concomitant]
     Active Substance: PILOCARPINE
  14. POTASSIUM [Concomitant]
     Active Substance: POTASSIUM
  15. PREDNISONE [Concomitant]
     Active Substance: PREDNISONE
  16. TRAZODONE [Concomitant]
     Active Substance: TRAZODONE HYDROCHLORIDE
  17. VITAMINS NOS [Concomitant]
     Active Substance: VITAMINS
  18. ZINC [Concomitant]
     Active Substance: ZINC
  19. ZYRTEC [Concomitant]
     Active Substance: CETIRIZINE HYDROCHLORIDE
  20. TRAZODONE HCL [Concomitant]
     Active Substance: TRAZODONE HYDROCHLORIDE
  21. PILOCARPINE HYDROCHLORIDE [Concomitant]
     Active Substance: PILOCARPINE HYDROCHLORIDE

REACTIONS (8)
  - Death [Fatal]
  - Pain in extremity [Not Recovered/Not Resolved]
  - Musculoskeletal stiffness [Not Recovered/Not Resolved]
  - Chest discomfort [Not Recovered/Not Resolved]
  - Oropharyngeal pain [Not Recovered/Not Resolved]
  - Condition aggravated [Not Recovered/Not Resolved]
  - Influenza [Unknown]
  - Drug ineffective [Unknown]

NARRATIVE: CASE EVENT DATE: 20240101
